FAERS Safety Report 26028106 (Version 1)
Quarter: 2025Q4

REPORT INFORMATION
  Report Type: Spontaneous
  Country: EU (occurrence: EU)
  Receive Date: 20251111
  Receipt Date: 20251111
  Transmission Date: 20260118
  Serious: Yes (Other)
  Sender: SANDOZ
  Company Number: EU-Orion Corporation ORION PHARMA-TREX2025-0158

PATIENT
  Age: 71 Year
  Sex: Female

DRUGS (1)
  1. METHOTREXATE [Suspect]
     Active Substance: METHOTREXATE
     Indication: Rheumatoid arthritis
     Dosage: UNK
     Route: 065

REACTIONS (4)
  - Immune system disorder [Recovering/Resolving]
  - B-cell lymphoma [Recovering/Resolving]
  - Extranodal marginal zone B-cell lymphoma (MALT type) [Recovering/Resolving]
  - Lymphoma [Recovering/Resolving]
